FAERS Safety Report 8922436 (Version 1)
Quarter: 2012Q4

REPORT INFORMATION
  Report Type: 
  Country: DE (occurrence: DE)
  Receive Date: 20121123
  Receipt Date: 20121123
  Transmission Date: 20130627
  Serious: Yes (Death, Hospitalization)
  Sender: FDA-Public Use
  Company Number: PHHO2012DE014196

PATIENT
  Age: 69 Year
  Sex: Female
  Weight: 48 kg

DRUGS (2)
  1. EVEROLIMUS [Suspect]
     Indication: BREAST CANCER METASTATIC
     Dosage: 10 mg, UNK
     Route: 048
     Dates: start: 20120705, end: 20120930
  2. EXEMESTANE [Suspect]
     Indication: BREAST CANCER METASTATIC
     Dosage: 25 mg, UNK
     Dates: start: 20120705, end: 20120930

REACTIONS (4)
  - Neoplasm progression [Fatal]
  - Malignant neoplasm progression [Fatal]
  - Vomiting [Not Recovered/Not Resolved]
  - Abdominal pain [Not Recovered/Not Resolved]
